FAERS Safety Report 9478696 (Version 1)
Quarter: 2013Q3

REPORT INFORMATION
  Report Type: Report from Study
  Country: US (occurrence: US)
  Receive Date: 20130827
  Receipt Date: 20130827
  Transmission Date: 20140515
  Serious: Yes (Hospitalization)
  Sender: FDA-Public Use
  Company Number: US-ACTELION-A-US2013-87460

PATIENT
  Age: 24 Year
  Sex: Male

DRUGS (2)
  1. VELETRI [Suspect]
     Indication: PULMONARY ARTERIAL HYPERTENSION
     Dosage: 30 NG/KG, PER MIN
     Route: 041
     Dates: start: 20110106
  2. ADCIRCA [Concomitant]

REACTIONS (2)
  - Blood potassium decreased [Unknown]
  - Blood count abnormal [Unknown]
